FAERS Safety Report 18194824 (Version 9)
Quarter: 2021Q1

REPORT INFORMATION
  Report Type: Report from Study
  Country: CZ (occurrence: CZ)
  Receive Date: 20200825
  Receipt Date: 20210319
  Transmission Date: 20210419
  Serious: Yes (Hospitalization)
  Sender: FDA-Public Use
  Company Number: CZ-PFIZER INC-2020322636

PATIENT
  Age: 64 Year
  Sex: Female
  Weight: 66 kg

DRUGS (14)
  1. PALBOCICLIB [Suspect]
     Active Substance: PALBOCICLIB
     Indication: INVASIVE DUCTAL BREAST CARCINOMA
     Dosage: 125 MG, QD
     Route: 048
     Dates: start: 20200617, end: 20200617
  2. EUTHYROX [Concomitant]
     Active Substance: LEVOTHYROXINE SODIUM
     Dosage: UNK
     Route: 048
     Dates: start: 201405
  3. PALBOCICLIB [Suspect]
     Active Substance: PALBOCICLIB
     Dosage: 125 MG, QD
     Route: 048
     Dates: start: 20200716, end: 20200804
  4. AMCENESTRANT. [Suspect]
     Active Substance: AMCENESTRANT
     Dosage: 200 MG, QD
     Route: 048
     Dates: start: 20200812, end: 20200812
  5. KORYLAN [CODEINE PHOSPHATE SESQUIHYDRATE;PARACETAMOL] [Concomitant]
     Indication: PROPHYLAXIS
     Dosage: UNK
     Route: 048
     Dates: start: 201505, end: 20201220
  6. ESPUMISAN [DIMETICONE] [Concomitant]
     Dosage: UNK
     Route: 048
     Dates: start: 20200708
  7. AMCENESTRANT. [Suspect]
     Active Substance: AMCENESTRANT
     Indication: INVASIVE DUCTAL BREAST CARCINOMA
     Dosage: 200 MG, QD
     Route: 048
     Dates: start: 20200617, end: 20200617
  8. GODASAL [Concomitant]
     Active Substance: ASPIRIN\GLYCINE
     Indication: PROPHYLAXIS
     Dosage: UNK
     Route: 048
     Dates: start: 201405, end: 20200811
  9. CARAMLO [Concomitant]
     Active Substance: AMLODIPINE BESYLATE\CANDESARTAN CILEXETIL
     Dosage: UNK
     Route: 048
     Dates: start: 2017
  10. LYRICA [Concomitant]
     Active Substance: PREGABALIN
     Indication: PROPHYLAXIS
     Dosage: UNK
     Route: 048
     Dates: start: 202005
  11. ORTANOL [OMEPRAZOLE] [Concomitant]
     Active Substance: OMEPRAZOLE
     Indication: PROPHYLAXIS
     Dosage: UNK
     Route: 048
     Dates: start: 2014, end: 20210201
  12. CALCIUM [Concomitant]
     Active Substance: CALCIUM
     Indication: PROPHYLAXIS
     Dosage: UNK
     Route: 048
     Dates: start: 2014
  13. LEXAURIN [Concomitant]
     Active Substance: BROMAZEPAM
     Indication: PROPHYLAXIS
     Dosage: UNK
     Route: 048
     Dates: start: 201405
  14. MAGNOSOLV [Concomitant]
     Active Substance: MAGNESIUM CARBONATE\MAGNESIUM OXIDE
     Dosage: UNK
     Route: 048
     Dates: start: 20200713

REACTIONS (1)
  - Deep vein thrombosis [Recovered/Resolved]

NARRATIVE: CASE EVENT DATE: 20200812
